FAERS Safety Report 20845100 (Version 1)
Quarter: 2022Q2

REPORT INFORMATION
  Report Type: Spontaneous
  Country: US (occurrence: None)
  Receive Date: 20220517
  Receipt Date: 20220517
  Transmission Date: 20220720
  Serious: No
  Sender: FDA-Public Use
  Company Number: None

PATIENT
  Age: 29 Year
  Sex: Female

DRUGS (1)
  1. QUETIAPINE FUMARATE [Suspect]
     Active Substance: QUETIAPINE FUMARATE
     Indication: Insomnia
     Dosage: OTHER QUANTITY : 30 TABLET(S);?FREQUENCY : AT BEDTIME;?
     Route: 048
     Dates: start: 20220511, end: 20220517

REACTIONS (13)
  - Migraine [None]
  - Hyperhidrosis [None]
  - Hypertension [None]
  - Dizziness [None]
  - Nightmare [None]
  - Palpitations [None]
  - Irritability [None]
  - Dry mouth [None]
  - Restless legs syndrome [None]
  - Tremor [None]
  - Tremor [None]
  - Musculoskeletal stiffness [None]
  - Myalgia [None]
